FAERS Safety Report 8918458 (Version 1)
Quarter: 2012Q4

REPORT INFORMATION
  Report Type: 
  Country: US (occurrence: US)
  Receive Date: 20121120
  Receipt Date: 20121120
  Transmission Date: 20130627
  Serious: No
  Sender: FDA-Public Use
  Company Number: US-ASTRAZENECA-2012SE27228

PATIENT
  Age: 36098 Day
  Sex: Female
  Weight: 62.6 kg

DRUGS (1)
  1. NEXIUM [Suspect]
     Indication: GASTROOESOPHAGEAL REFLUX DISEASE
     Route: 048
     Dates: start: 201202, end: 20120425

REACTIONS (4)
  - Dyspepsia [Unknown]
  - Pain [Unknown]
  - Skin burning sensation [Unknown]
  - Erythema [Unknown]
